FAERS Safety Report 5114205-8 (Version None)
Quarter: 2006Q3

REPORT INFORMATION
  Report Type: 
  Country: None (occurrence: None)
  Receive Date: 20060925
  Receipt Date: 20060918
  Transmission Date: 20061208
  Serious: Yes (Other)
  Sender: FDA-Public Use
  Company Number: US-SANOFI-SYNTHELABO-A03200605786

PATIENT
  Sex: Female

DRUGS (2)
  1. COUMADIN [Concomitant]
     Route: 048
  2. PLAVIX [Suspect]
     Indication: ATRIAL FIBRILLATION
     Route: 048

REACTIONS (1)
  - DEEP VEIN THROMBOSIS [None]
